FAERS Safety Report 4535633-5 (Version None)
Quarter: 2004Q4

REPORT INFORMATION
  Report Type: 
  Country: None (occurrence: None)
  Receive Date: 20041222
  Receipt Date: 20041222
  Transmission Date: 20050328
  Serious: No
  Sender: FDA-Public Use
  Company Number: None

PATIENT
  Sex: Female
  Weight: 61.2 kg

DRUGS (1)
  1. SANDIMMUNE [Suspect]
     Dosage: 190 MG BID /PO
     Route: 048
     Dates: start: 20040628

REACTIONS (1)
  - DRUG LEVEL FLUCTUATING [None]
